FAERS Safety Report 8192365-2 (Version None)
Quarter: 2012Q1

REPORT INFORMATION
  Report Type: 
  Country: None (occurrence: None)
  Receive Date: 20120308
  Receipt Date: 20120228
  Transmission Date: 20120608
  Serious: Yes (Other)
  Sender: FDA-Public Use
  Company Number: US-AMGEN-USASP2012013025

PATIENT
  Age: 76 Year
  Sex: Female

DRUGS (1)
  1. ENBREL [Suspect]
     Indication: RHEUMATOID ARTHRITIS
     Dosage: 50 MG, QWK
     Dates: start: 20040413

REACTIONS (7)
  - HYPOTENSION [None]
  - INJECTION SITE EXTRAVASATION [None]
  - GROIN PAIN [None]
  - INJECTION SITE HAEMORRHAGE [None]
  - SKIN BURNING SENSATION [None]
  - BACK PAIN [None]
  - LOWER RESPIRATORY TRACT INFECTION [None]
